FAERS Safety Report 18463416 (Version 1)
Quarter: 2020Q4

REPORT INFORMATION
  Report Type: Report from Study
  Country: US (occurrence: US)
  Receive Date: 20201104
  Receipt Date: 20201104
  Transmission Date: 20210114
  Serious: Yes (Other)
  Sender: FDA-Public Use
  Company Number: US-JNJFOC-20201046782

PATIENT
  Age: 38 Year
  Sex: Female

DRUGS (15)
  1. HYDROXYZ HCL [Concomitant]
     Active Substance: HYDROXYZINE HYDROCHLORIDE
  2. METHOTREXATE. [Concomitant]
     Active Substance: METHOTREXATE
  3. VITAMIN D NOS [Concomitant]
     Active Substance: VITAMIN D NOS
  4. STELARA [Suspect]
     Active Substance: USTEKINUMAB
     Indication: CROHN^S DISEASE
     Route: 058
     Dates: start: 20180207
  5. FOLIC ACID. [Concomitant]
     Active Substance: FOLIC ACID
  6. IRON [Concomitant]
     Active Substance: IRON
  7. TRAMADOL. [Concomitant]
     Active Substance: TRAMADOL
  8. PHENERGAN [Concomitant]
     Active Substance: PROMETHAZINE HYDROCHLORIDE
  9. MARINOL [Concomitant]
     Active Substance: DRONABINOL
  10. TRAZODONE [Concomitant]
     Active Substance: TRAZODONE HYDROCHLORIDE
  11. BENADRYL [Concomitant]
     Active Substance: DIPHENHYDRAMINE HYDROCHLORIDE
  12. OPIUM. [Concomitant]
     Active Substance: OPIUM
  13. ZOFRAN [Concomitant]
     Active Substance: ONDANSETRON HYDROCHLORIDE
  14. ZYRTEC [Concomitant]
     Active Substance: CETIRIZINE HYDROCHLORIDE
  15. STELARA [Suspect]
     Active Substance: USTEKINUMAB

REACTIONS (1)
  - Arthritis bacterial [Not Recovered/Not Resolved]
